FAERS Safety Report 8294186-9 (Version None)
Quarter: 2012Q2

REPORT INFORMATION
  Report Type: 
  Country: None (occurrence: None)
  Receive Date: 20120418
  Receipt Date: 20120412
  Transmission Date: 20120825
  Serious: No
  Sender: FDA-Public Use
  Company Number: PHEH2012US008178

PATIENT
  Sex: Female
  Weight: 62 kg

DRUGS (6)
  1. VITAMIN D [Concomitant]
  2. ZANTAC [Concomitant]
  3. MULTI-VITAMINS [Concomitant]
  4. TASIGNA [Suspect]
     Dosage: 300 MG, BID
     Route: 048
  5. SYNTHROID [Concomitant]
  6. FISH OIL [Concomitant]

REACTIONS (1)
  - NAUSEA [None]
